FAERS Safety Report 4425038-X (Version None)
Quarter: 2004Q3

REPORT INFORMATION
  Report Type: 
  Country: None (occurrence: None)
  Receive Date: 20040813
  Receipt Date: 20040805
  Transmission Date: 20050211
  Serious: Yes (Other)
  Sender: FDA-Public Use
  Company Number: 200417743GDDC

PATIENT
  Age: 57 Year
  Sex: Male
  Weight: 93 kg

DRUGS (2)
  1. FEXOFENADINE HCL [Suspect]
     Indication: ANGIONEUROTIC OEDEMA
     Route: 048
     Dates: start: 20030301, end: 20030301
  2. FEXOFENADINE HCL [Suspect]
     Indication: URTICARIA
     Route: 048
     Dates: start: 20030301, end: 20030301

REACTIONS (3)
  - AGGRESSION [None]
  - DEPRESSION [None]
  - TEARFULNESS [None]
